FAERS Safety Report 13194633 (Version 1)
Quarter: 2017Q1

REPORT INFORMATION
  Report Type: Spontaneous
  Country: US (occurrence: US)
  Receive Date: 20170207
  Receipt Date: 20170207
  Transmission Date: 20170428
  Serious: No
  Sender: FDA-Public Use
  Company Number: US-JAZZ-2016-US-011075

PATIENT
  Age: 22 Year
  Sex: Female

DRUGS (1)
  1. PRIALT [Suspect]
     Active Substance: ZICONOTIDE ACETATE
     Indication: SPINAL PAIN

REACTIONS (5)
  - Pain [Unknown]
  - Hypersensitivity [Unknown]
  - Device issue [Unknown]
  - Paronychia [Unknown]
  - Sinusitis [Unknown]

NARRATIVE: CASE EVENT DATE: 201606
